FAERS Safety Report 9838275 (Version 1)
Quarter: 2014Q1

REPORT INFORMATION
  Report Type: Spontaneous
  Country: CA (occurrence: CA)
  Receive Date: 20140123
  Receipt Date: 20140123
  Transmission Date: 20141002
  Serious: Yes (Other)
  Sender: FDA-Public Use
  Company Number: CA-ASTRAZENECA-2014SE03606

PATIENT
  Sex: Male
  Weight: 81.6 kg

DRUGS (4)
  1. CASODEX [Suspect]
     Route: 048
  2. LUPRON [Suspect]
     Dosage: 30 MCG, ONE EVERY FOUR MONTHS
     Route: 030
  3. ACETYLSALICYLIC ACID [Concomitant]
  4. XGEVA SINGLE-USE VIAL [Concomitant]
     Route: 058

REACTIONS (4)
  - Bone lesion [Unknown]
  - Prostate cancer [Unknown]
  - Malignant neoplasm progression [Unknown]
  - Drug ineffective [Unknown]
